FAERS Safety Report 25877991 (Version 1)
Quarter: 2025Q4

REPORT INFORMATION
  Report Type: Spontaneous
  Country: EU (occurrence: EU)
  Receive Date: 20251003
  Receipt Date: 20251003
  Transmission Date: 20260118
  Serious: Yes (Hospitalization)
  Sender: IPSEN BIOPHARMACEUTICALS, INC.
  Company Number: None

PATIENT
  Age: 75 Year
  Sex: Male

DRUGS (3)
  1. DYSPORT [Suspect]
     Active Substance: ABOBOTULINUMTOXINA
     Indication: Hemiparesis
     Dosage: 1500 IU
     Dates: start: 20240930, end: 20240930
  2. DYSPORT [Suspect]
     Active Substance: ABOBOTULINUMTOXINA
     Dosage: 1500 IU
     Dates: start: 20250127, end: 20250127
  3. DYSPORT [Suspect]
     Active Substance: ABOBOTULINUMTOXINA
     Dosage: 1500 IU
     Dates: start: 20250616, end: 20250616

REACTIONS (2)
  - Lung disorder [Recovered/Resolved]
  - Oxygen saturation decreased [Recovered/Resolved]

NARRATIVE: CASE EVENT DATE: 20250701
